APPROVED DRUG PRODUCT: HALCION
Active Ingredient: TRIAZOLAM
Strength: 0.125MG
Dosage Form/Route: TABLET;ORAL
Application: N017892 | Product #003 | TE Code: AB
Applicant: PFIZER INC
Approved: Apr 26, 1985 | RLD: Yes | RS: No | Type: RX